FAERS Safety Report 7797161-3 (Version None)
Quarter: 2011Q4

REPORT INFORMATION
  Report Type: 
  Country: None (occurrence: None)
  Receive Date: 20111005
  Receipt Date: 20110923
  Transmission Date: 20120403
  Serious: Yes (Hospitalization)
  Sender: FDA-Public Use
  Company Number: US-BAYER-2011-007500

PATIENT
  Age: 29 Year
  Sex: Female
  Weight: 62.4 kg

DRUGS (11)
  1. YASMIN [Suspect]
     Dosage: UNK
     Dates: start: 20091001, end: 20100101
  2. YAZ [Suspect]
     Dosage: UNK
     Dates: start: 20081101, end: 20090401
  3. DROSPIRENONE AND ETHINYL ESTRADIOL [Suspect]
     Dosage: UNK
     Dates: start: 20091001, end: 20100101
  4. YASMIN [Suspect]
     Indication: CONTRACEPTION
     Dosage: UNK
     Dates: start: 20051201, end: 20080401
  5. DROSPIRENONE AND ETHINYL ESTRADIOL [Suspect]
     Indication: CONTRACEPTION
     Dosage: UNK
     Dates: start: 20051201, end: 20080401
  6. YAZ [Suspect]
     Indication: CONTRACEPTION
     Dosage: UNK
     Dates: start: 20051201, end: 20080401
  7. PHENERGAN HCL [Concomitant]
     Dosage: 25 MG
     Route: 048
     Dates: start: 20091016
  8. YASMIN [Suspect]
     Dosage: UNK
     Dates: start: 20081101, end: 20090401
  9. LORTAB [Concomitant]
     Dosage: 7.5/ 500 MG, AS NEEDED
     Route: 048
     Dates: start: 20091016
  10. YAZ [Suspect]
     Dosage: UNK
     Dates: start: 20091001, end: 20100101
  11. DROSPIRENONE AND ETHINYL ESTRADIOL [Suspect]
     Dosage: UNK
     Dates: start: 20081101, end: 20090401

REACTIONS (3)
  - INJURY [None]
  - CHOLELITHIASIS [None]
  - PAIN [None]
